FAERS Safety Report 8853853 (Version 1)
Quarter: 2012Q4

REPORT INFORMATION
  Report Type: 
  Country: BR (occurrence: BR)
  Receive Date: 20121022
  Receipt Date: 20121022
  Transmission Date: 20130627
  Serious: Yes (Death, Life-Threatening, Hospitalization, Other)
  Sender: FDA-Public Use
  Company Number: PHHY2012BR093278

PATIENT
  Age: 87 Year
  Sex: Female
  Weight: 75 kg

DRUGS (6)
  1. FORASEQ [Suspect]
     Indication: ASTHMA
     Dosage: 1 DF, Q12H
  2. TYLEX [Concomitant]
     Indication: PAIN IN EXTREMITY
     Dosage: 1 DF, QD
     Route: 048
  3. PARACETAMOL [Concomitant]
     Indication: PAIN IN EXTREMITY
     Dosage: 1 DF, PRN every 4 or 6 hours
     Route: 048
  4. TYLENOL [Concomitant]
     Indication: PAIN IN EXTREMITY
     Dosage: 1 DF, PRN every 4 or 6 hours
     Route: 048
  5. TRAMADOL [Concomitant]
     Indication: PAIN IN EXTREMITY
     Dosage: 1 DF, PRN every 12 hours
     Route: 048
  6. CITALOPRAM [Concomitant]
     Indication: ANXIETY
     Dosage: 1 DF, QD
     Route: 048

REACTIONS (14)
  - Multi-organ failure [Fatal]
  - Cardiac arrest [Fatal]
  - Poor peripheral circulation [Fatal]
  - Sepsis [Fatal]
  - Chronic obstructive pulmonary disease [Fatal]
  - Infection [Fatal]
  - Pneumonia [Fatal]
  - Anaemia [Unknown]
  - Coma [Unknown]
  - General physical health deterioration [Unknown]
  - Movement disorder [Unknown]
  - Dyspnoea [Recovered/Resolved]
  - Fatigue [Recovered/Resolved]
  - Pain [Recovered/Resolved]
